FAERS Safety Report 15097363 (Version 1)
Quarter: 2018Q3

REPORT INFORMATION
  Report Type: Spontaneous
  Country: US (occurrence: US)
  Receive Date: 20180702
  Receipt Date: 20180702
  Transmission Date: 20181010
  Serious: No
  Sender: FDA-Public Use
  Company Number: US-PFIZER INC-2018264279

PATIENT
  Age: 24 Year
  Sex: Female
  Weight: 57.61 kg

DRUGS (2)
  1. ALEVE [Suspect]
     Active Substance: NAPROXEN SODIUM
     Indication: LIGAMENT RUPTURE
     Dosage: 440 MG, ONCE OR TWICE A DAY (220MG TABLET, TWO TABLETS BY MOUTH, ONCE OR TWICE A DAY)
     Route: 048
  2. ADVIL [Suspect]
     Active Substance: IBUPROFEN
     Indication: LIGAMENT RUPTURE
     Dosage: 400 MG, 2X/DAY (200MG, 2 TABLETS BY MOUTH, TWICE A DAY)
     Route: 048

REACTIONS (1)
  - Urticaria [Not Recovered/Not Resolved]

NARRATIVE: CASE EVENT DATE: 20180624
